FAERS Safety Report 18390382 (Version 2)
Quarter: 2021Q2

REPORT INFORMATION
  Report Type: Spontaneous
  Country: US (occurrence: US)
  Receive Date: 20201016
  Receipt Date: 20210518
  Transmission Date: 20210717
  Serious: No
  Sender: FDA-Public Use
  Company Number: US-SA-2020SA289589

PATIENT
  Age: 59 Year
  Sex: Female

DRUGS (1)
  1. DUPIXENT [Suspect]
     Active Substance: DUPILUMAB
     Indication: DERMATITIS ATOPIC
     Dosage: 300 MG; OTHER
     Route: 058
     Dates: start: 202009, end: 20210428

REACTIONS (3)
  - Injection site erythema [Unknown]
  - Drug ineffective [Unknown]
  - Injection site rash [Unknown]

NARRATIVE: CASE EVENT DATE: 2020
